FAERS Safety Report 6687903-2 (Version None)
Quarter: 2010Q2

REPORT INFORMATION
  Report Type: 
  Country: None (occurrence: None)
  Receive Date: 20100420
  Receipt Date: 20100408
  Transmission Date: 20101027
  Serious: Yes (Hospitalization)
  Sender: FDA-Public Use
  Company Number: AR-JNJFOC-20100307810

PATIENT
  Age: 8 Year
  Sex: Female
  Weight: 30 kg

DRUGS (2)
  1. IBUPIRAC 2% [Suspect]
     Indication: VOMITING
     Route: 048
  2. IBUPIRAC 2% [Suspect]
     Indication: PYREXIA
     Route: 048

REACTIONS (4)
  - DEHYDRATION [None]
  - GASTROENTERITIS [None]
  - PRODUCT CONTAMINATION MICROBIAL [None]
  - VOMITING [None]
